FAERS Safety Report 4550290-X (Version None)
Quarter: 2005Q1

REPORT INFORMATION
  Report Type: 
  Country: None (occurrence: None)
  Receive Date: 20050110
  Receipt Date: 20041228
  Transmission Date: 20050727
  Serious: Yes (Other)
  Sender: FDA-Public Use
  Company Number: HQWYE385111NOV04

PATIENT
  Age: 29 Year
  Sex: Female
  Weight: 70.82 kg

DRUGS (6)
  1. EFFEXOR XR [Suspect]
     Indication: ANXIETY
     Dosage: 75 MG 1X PER 1 DAY, ORAL; ^TAPERED OFF^, ORAL; ^SAMPLES WERE GIVEN^, ORAL
     Route: 048
     Dates: start: 20021003, end: 20040101
  2. EFFEXOR XR [Suspect]
     Indication: DEPRESSION
     Dosage: 75 MG 1X PER 1 DAY, ORAL; ^TAPERED OFF^, ORAL; ^SAMPLES WERE GIVEN^, ORAL
     Route: 048
     Dates: start: 20021003, end: 20040101
  3. EFFEXOR XR [Suspect]
     Indication: ANXIETY
     Dosage: 75 MG 1X PER 1 DAY, ORAL; ^TAPERED OFF^, ORAL; ^SAMPLES WERE GIVEN^, ORAL
     Route: 048
     Dates: start: 20040101, end: 20041015
  4. EFFEXOR XR [Suspect]
     Indication: DEPRESSION
     Dosage: 75 MG 1X PER 1 DAY, ORAL; ^TAPERED OFF^, ORAL; ^SAMPLES WERE GIVEN^, ORAL
     Route: 048
     Dates: start: 20040101, end: 20041015
  5. EFFEXOR XR [Suspect]
     Indication: ANXIETY
     Dosage: 75 MG 1X PER 1 DAY, ORAL; ^TAPERED OFF^, ORAL; ^SAMPLES WERE GIVEN^, ORAL
     Route: 048
     Dates: start: 20041025
  6. EFFEXOR XR [Suspect]
     Indication: DEPRESSION
     Dosage: 75 MG 1X PER 1 DAY, ORAL; ^TAPERED OFF^, ORAL; ^SAMPLES WERE GIVEN^, ORAL
     Route: 048
     Dates: start: 20041025

REACTIONS (5)
  - CRYING [None]
  - DEPRESSION [None]
  - DRUG WITHDRAWAL SYNDROME [None]
  - ECONOMIC PROBLEM [None]
  - HYPERPHAGIA [None]
